FAERS Safety Report 7243424-X (Version None)
Quarter: 2011Q1

REPORT INFORMATION
  Report Type: 
  Country: None (occurrence: None)
  Receive Date: 20110119
  Receipt Date: 20110119
  Transmission Date: 20110831
  Serious: Yes (Hospitalization)
  Sender: FDA-Public Use
  Company Number: None

PATIENT
  Age: 70 Year
  Sex: Male
  Weight: 98.88 kg

DRUGS (1)
  1. WARFARIN SODIUM [Suspect]
     Indication: ATRIAL FIBRILLATION
     Dates: start: 20101117

REACTIONS (4)
  - GASTROINTESTINAL HAEMORRHAGE [None]
  - BARRETT'S OESOPHAGUS [None]
  - INTERNATIONAL NORMALISED RATIO ABNORMAL [None]
  - GASTRITIS [None]
